FAERS Safety Report 21404778 (Version 1)
Quarter: 2022Q3

REPORT INFORMATION
  Report Type: Spontaneous
  Country: US (occurrence: None)
  Receive Date: 20220930
  Receipt Date: 20220930
  Transmission Date: 20221027
  Serious: Yes (Hospitalization)
  Sender: FDA-Public Use
  Company Number: None

PATIENT
  Age: 79 Year
  Sex: Male
  Weight: 106.59 kg

DRUGS (1)
  1. RIVAROXABAN [Suspect]
     Active Substance: RIVAROXABAN
     Indication: Atrial fibrillation
     Dosage: 15 MG EVERY DAY PO?
     Route: 048
     Dates: start: 20220524, end: 20220928

REACTIONS (2)
  - Gastrointestinal haemorrhage [None]
  - Blood loss anaemia [None]

NARRATIVE: CASE EVENT DATE: 20220903
